FAERS Safety Report 9786570 (Version 2)
Quarter: 2013Q4

REPORT INFORMATION
  Report Type: Report from Study
  Country: US (occurrence: US)
  Receive Date: 20131227
  Receipt Date: 20131227
  Transmission Date: 20140711
  Serious: Yes (Hospitalization, Other)
  Sender: FDA-Public Use
  Company Number: US-ABBVIE-13P-163-1154064-00

PATIENT
  Age: 55 Year
  Sex: Female
  Weight: 65.38 kg

DRUGS (12)
  1. HUMIRA [Suspect]
     Indication: PSORIATIC ARTHROPATHY
     Dates: start: 2005
  2. HUMIRA [Suspect]
     Dates: end: 2008
  3. MELOXICAM [Concomitant]
     Indication: INFLAMMATION
  4. LEVOTHYROXINE [Concomitant]
     Indication: HYPOTHYROIDISM
  5. VIVELLE [Concomitant]
     Indication: HORMONE REPLACEMENT THERAPY
  6. MOBIC [Concomitant]
     Indication: PRODUCT USED FOR UNKNOWN INDICATION
  7. SYNTHROID [Concomitant]
     Indication: PRODUCT USED FOR UNKNOWN INDICATION
  8. RESTASIS [Concomitant]
     Indication: PRODUCT USED FOR UNKNOWN INDICATION
     Dosage: TO BOTH EYES
  9. TACLONEX [Concomitant]
     Indication: PRODUCT USED FOR UNKNOWN INDICATION
  10. METHOTREXATE [Concomitant]
  11. ENBREL [Concomitant]
     Indication: PSORIATIC ARTHROPATHY
  12. METHOTREXATE [Concomitant]
     Indication: PSORIATIC ARTHROPATHY

REACTIONS (15)
  - Joint swelling [Recovered/Resolved]
  - Abscess [Unknown]
  - Cellulitis [Unknown]
  - Lymphangitis [Unknown]
  - Lymphadenopathy [Recovered/Resolved]
  - Wound complication [Recovered/Resolved]
  - Paronychia [Recovered/Resolved]
  - Paronychia [Recovered/Resolved]
  - Prehypertension [Recovering/Resolving]
  - Pyrexia [Recovered/Resolved]
  - Local swelling [Recovered/Resolved]
  - Erythema [Recovered/Resolved]
  - Axillary pain [Unknown]
  - Arthralgia [Unknown]
  - Pruritus [Recovering/Resolving]
